FAERS Safety Report 5568432-6 (Version None)
Quarter: 2007Q4

REPORT INFORMATION
  Report Type: 
  Country: None (occurrence: None)
  Receive Date: 20071220
  Receipt Date: 20071217
  Transmission Date: 20080405
  Serious: Yes (Other)
  Sender: FDA-Public Use
  Company Number: US-ELI_LILLY_AND_COMPANY-US200712003630

PATIENT
  Sex: Female

DRUGS (3)
  1. HUMALOG [Suspect]
     Dosage: UNK, UNK
     Route: 058
     Dates: start: 20000101, end: 20070101
  2. HUMALOG [Suspect]
     Dates: start: 20070101
  3. LANTUS [Concomitant]

REACTIONS (4)
  - BLOOD GLUCOSE DECREASED [None]
  - CEREBROVASCULAR ACCIDENT [None]
  - COMA [None]
  - SHOCK HYPOGLYCAEMIC [None]
